FAERS Safety Report 19321002 (Version 1)
Quarter: 2021Q2

REPORT INFORMATION
  Report Type: Spontaneous
  Country: US (occurrence: US)
  Receive Date: 20210528
  Receipt Date: 20210528
  Transmission Date: 20210717
  Serious: No
  Sender: FDA-Public Use
  Company Number: None

PATIENT
  Age: 73 Year
  Sex: Male
  Weight: 94 kg

DRUGS (1)
  1. REMDESIVIR (EUA) [Suspect]
     Active Substance: REMDESIVIR
     Indication: COVID-19 PNEUMONIA
     Route: 042
     Dates: start: 20200516, end: 20200522

REACTIONS (2)
  - Cardiac arrest [None]
  - Acute respiratory failure [None]

NARRATIVE: CASE EVENT DATE: 20200522
